FAERS Safety Report 17473593 (Version 1)
Quarter: 2020Q1

REPORT INFORMATION
  Report Type: Report from Study
  Country: CA (occurrence: CA)
  Receive Date: 20200228
  Receipt Date: 20200228
  Transmission Date: 20200409
  Serious: Yes (Other)
  Sender: FDA-Public Use
  Company Number: CA-JNJFOC-20181119146

PATIENT
  Age: 40 Year
  Sex: Female
  Weight: 74 kg

DRUGS (7)
  1. SIMPONI [Suspect]
     Active Substance: GOLIMUMAB
     Indication: ANKYLOSING SPONDYLITIS
     Route: 058
     Dates: start: 20180525
  2. DILTIAZEM. [Concomitant]
     Active Substance: DILTIAZEM
     Indication: ARRHYTHMIA
     Route: 048
  3. SIMPONI [Suspect]
     Active Substance: GOLIMUMAB
     Route: 058
  4. VOLTAREN [Concomitant]
     Active Substance: DICLOFENAC SODIUM
     Indication: ANTIINFLAMMATORY THERAPY
     Route: 048
  5. CYMBALTA [Concomitant]
     Active Substance: DULOXETINE HYDROCHLORIDE
     Indication: ANTIDEPRESSANT THERAPY
     Route: 048
  6. DEXILANT [Concomitant]
     Active Substance: DEXLANSOPRAZOLE
     Indication: GASTRIC DISORDER
     Route: 048
  7. SIMPONI [Suspect]
     Active Substance: GOLIMUMAB
     Route: 058

REACTIONS (4)
  - Influenza [Recovering/Resolving]
  - Drug ineffective [Not Recovered/Not Resolved]
  - Ankylosing spondylitis [Not Recovered/Not Resolved]
  - Tonsillar hypertrophy [Recovering/Resolving]

NARRATIVE: CASE EVENT DATE: 201805
